FAERS Safety Report 14089058 (Version 1)
Quarter: 2017Q4

REPORT INFORMATION
  Report Type: Spontaneous
  Country: US (occurrence: US)
  Receive Date: 20171013
  Receipt Date: 20171013
  Transmission Date: 20180321
  Serious: Yes (Hospitalization, Other)
  Sender: FDA-Public Use
  Company Number: US-B.I. PHARMACEUTICALS,INC./RIDGEFIELD-2017-BI-054757

PATIENT
  Age: 65 Year
  Sex: Female

DRUGS (7)
  1. XOPENEX [Concomitant]
     Active Substance: LEVALBUTEROL HYDROCHLORIDE
     Dosage: AS NEEDED;
     Route: 055
  2. XOPENEX [Concomitant]
     Active Substance: LEVALBUTEROL HYDROCHLORIDE
     Dosage: AS NEEDED;
     Route: 055
     Dates: start: 201702
  3. SPIRIVA [Suspect]
     Active Substance: TIOTROPIUM BROMIDE MONOHYDRATE
     Indication: CHRONIC OBSTRUCTIVE PULMONARY DISEASE
     Route: 055
     Dates: end: 2017
  4. XOPENEX [Concomitant]
     Active Substance: LEVALBUTEROL HYDROCHLORIDE
     Indication: CHRONIC OBSTRUCTIVE PULMONARY DISEASE
     Dosage: AS NEEDED;  FORM STRENGTH: 0.31MG/3ML, VIA NEBULIZER
     Route: 055
     Dates: start: 201702
  5. XOPENEX [Concomitant]
     Active Substance: LEVALBUTEROL HYDROCHLORIDE
     Dosage: AS NEEDED; VIA NEBULIZER
     Route: 055
     Dates: start: 201702
  6. SPIRIVA [Suspect]
     Active Substance: TIOTROPIUM BROMIDE MONOHYDRATE
     Route: 055
  7. XOPENEX [Concomitant]
     Active Substance: LEVALBUTEROL HYDROCHLORIDE
     Indication: CHRONIC OBSTRUCTIVE PULMONARY DISEASE
     Dosage: AS NEEDED;
     Route: 055
     Dates: start: 201702

REACTIONS (5)
  - Cough [Unknown]
  - Staphylococcal sepsis [Unknown]
  - Pneumothorax [Unknown]
  - Sputum retention [Unknown]
  - Pneumonia [Unknown]

NARRATIVE: CASE EVENT DATE: 201709
